FAERS Safety Report 18802037 (Version 3)
Quarter: 2022Q3

REPORT INFORMATION
  Report Type: Spontaneous
  Country: TW (occurrence: TW)
  Receive Date: 20210128
  Receipt Date: 20220713
  Transmission Date: 20221027
  Serious: No
  Sender: FDA-Public Use
  Company Number: TW-GSKCCFAPAC-CASE-01123439_AE-39191

PATIENT

DRUGS (1)
  1. FLOLAN [Suspect]
     Active Substance: EPOPROSTENOL SODIUM
     Indication: Product used for unknown indication
     Dosage: UNK

REACTIONS (4)
  - Infection [Unknown]
  - Device occlusion [Unknown]
  - Heart rate abnormal [Unknown]
  - Blood pressure abnormal [Unknown]
